FAERS Safety Report 5120083-3 (Version None)
Quarter: 2006Q3

REPORT INFORMATION
  Report Type: 
  Country: None (occurrence: None)
  Receive Date: 20060928
  Receipt Date: 20060915
  Transmission Date: 20061208
  Serious: Yes (Other)
  Sender: FDA-Public Use
  Company Number: 2006105485

PATIENT
  Age: 32 Month
  Sex: Female
  Weight: 14.5 kg

DRUGS (3)
  1. ZITHROMAX [Suspect]
     Indication: UPPER RESPIRATORY TRACT INFLAMMATION
     Dosage: 150 MG (150 MG, 1 IN 1 D), ORAL
     Route: 048
     Dates: start: 20060816, end: 20060818
  2. BIOFERMIN R (STREPTOCOCCUS FAECALIS) [Concomitant]
  3. IBUPROFEN [Concomitant]

REACTIONS (3)
  - BEDRIDDEN [None]
  - BODY TEMPERATURE INCREASED [None]
  - HYPOTHERMIA [None]
